FAERS Safety Report 22979849 (Version 2)
Quarter: 2024Q3

REPORT INFORMATION
  Report Type: Spontaneous
  Country: US (occurrence: US)
  Receive Date: 20230925
  Receipt Date: 20240813
  Transmission Date: 20241016
  Serious: Yes (Other)
  Sender: GILEAD
  Company Number: US-GILEAD-2023-0644571

PATIENT
  Age: 68 Year
  Sex: Male

DRUGS (1)
  1. LENACAPAVIR [Suspect]
     Active Substance: LENACAPAVIR
     Indication: HIV infection
     Dosage: 927MG EVERY 26 WEEKS
     Route: 058
     Dates: start: 202304

REACTIONS (1)
  - Blood pressure systolic decreased [Unknown]
